APPROVED DRUG PRODUCT: DESONIDE
Active Ingredient: DESONIDE
Strength: 0.05%
Dosage Form/Route: OINTMENT;TOPICAL
Application: A209996 | Product #001
Applicant: GLENMARK PHARMACEUTICALS LTD
Approved: Sep 15, 2017 | RLD: No | RS: No | Type: DISCN